FAERS Safety Report 8170339-5 (Version None)
Quarter: 2012Q1

REPORT INFORMATION
  Report Type: 
  Country: None (occurrence: None)
  Receive Date: 20120228
  Receipt Date: 20120222
  Transmission Date: 20120608
  Serious: Yes (Hospitalization)
  Sender: FDA-Public Use
  Company Number: GB-ASTELLAS-2012EU001351

PATIENT
  Age: 24 Year
  Sex: Female
  Weight: 40 kg

DRUGS (7)
  1. TACROLIMUS [Suspect]
     Dosage: 80 MG, UNKNOWN/D
     Route: 048
     Dates: start: 20120206, end: 20120206
  2. LEVOTHYROXINE SODIUM [Concomitant]
     Dosage: UNK
     Route: 065
  3. AMLODIPINE [Concomitant]
     Dosage: UNK
     Route: 065
  4. LANSOPRAZOLE [Concomitant]
     Dosage: UNK
     Route: 065
  5. PREDNISOLONE [Concomitant]
     Dosage: 5 MG, UNKNOWN/D
     Route: 065
  6. MYCOPHENOLATE MOFETIL [Suspect]
     Dosage: 85 DF, UNKNOWN/D
     Route: 048
     Dates: start: 20120206, end: 20120206
  7. ASPIRIN [Concomitant]
     Dosage: UNK
     Route: 065

REACTIONS (2)
  - INTENTIONAL OVERDOSE [None]
  - BLOOD CREATININE DECREASED [None]
